FAERS Safety Report 23926177 (Version 1)
Quarter: 2024Q2

REPORT INFORMATION
  Report Type: Spontaneous
  Country: ES (occurrence: ES)
  Receive Date: 20240531
  Receipt Date: 20240531
  Transmission Date: 20240716
  Serious: Yes (Hospitalization, Other)
  Sender: FDA-Public Use
  Company Number: ES-SUN PHARMACEUTICAL INDUSTRIES LTD-2024R1-447437

PATIENT
  Age: 64 Year
  Sex: Female
  Weight: 74.3 kg

DRUGS (1)
  1. BACTRIM [Suspect]
     Active Substance: SULFAMETHOXAZOLE\TRIMETHOPRIM
     Indication: Pneumonia
     Dosage: 160 MILLIGRAM, TID
     Route: 048
     Dates: start: 20231103

REACTIONS (9)
  - Acute kidney injury [Unknown]
  - Clostridium difficile colitis [Unknown]
  - Diarrhoea [Recovering/Resolving]
  - Hyponatraemia [Not Recovered/Not Resolved]
  - Muscular weakness [Not Recovered/Not Resolved]
  - Hypokalaemia [Unknown]
  - Anaemia [Recovered/Resolved]
  - Dehydration [Not Recovered/Not Resolved]
  - Hypocalcaemia [Not Recovered/Not Resolved]

NARRATIVE: CASE EVENT DATE: 20231110
